FAERS Safety Report 5572267-8 (Version None)
Quarter: 2007Q4

REPORT INFORMATION
  Report Type: 
  Country: None (occurrence: None)
  Receive Date: 20071221
  Receipt Date: 20071212
  Transmission Date: 20080405
  Serious: Yes (Other)
  Sender: FDA-Public Use
  Company Number: US-PFIZER INC-2007104550

PATIENT
  Sex: Male
  Weight: 99.8 kg

DRUGS (10)
  1. DETROL LA [Suspect]
     Indication: POLLAKIURIA
  2. DIGITEK [Concomitant]
  3. METOPROLOL [Concomitant]
  4. SIMVASTATIN [Concomitant]
  5. FUROSEMIDE [Concomitant]
  6. LISINOPRIL [Concomitant]
  7. NIACIN [Concomitant]
  8. SITAGLIPTIN [Concomitant]
  9. WARFARIN SODIUM [Concomitant]
  10. GLYBURIDE [Concomitant]

REACTIONS (3)
  - BALANCE DISORDER [None]
  - GAIT DISTURBANCE [None]
  - MIGRAINE [None]
